FAERS Safety Report 13555198 (Version 1)
Quarter: 2017Q2

REPORT INFORMATION
  Report Type: Spontaneous
  Country: US (occurrence: US)
  Receive Date: 20170517
  Receipt Date: 20170517
  Transmission Date: 20170830
  Serious: Yes (Death, Other)
  Sender: FDA-Public Use
  Company Number: US-JNJFOC-20170511110

PATIENT

DRUGS (8)
  1. HALDOL [Interacting]
     Active Substance: HALOPERIDOL
     Indication: PRODUCT USED FOR UNKNOWN INDICATION
     Route: 065
  2. PIMOZIDE. [Interacting]
     Active Substance: PIMOZIDE
     Indication: PRODUCT USED FOR UNKNOWN INDICATION
     Route: 065
  3. PALIPERIDONE. [Interacting]
     Active Substance: PALIPERIDONE
     Indication: PRODUCT USED FOR UNKNOWN INDICATION
     Route: 065
  4. INVEGA [Interacting]
     Active Substance: PALIPERIDONE
     Indication: PRODUCT USED FOR UNKNOWN INDICATION
     Route: 065
  5. ORAP [Interacting]
     Active Substance: PIMOZIDE
     Indication: PRODUCT USED FOR UNKNOWN INDICATION
     Route: 065
  6. RISPERIDONE. [Interacting]
     Active Substance: RISPERIDONE
     Indication: PRODUCT USED FOR UNKNOWN INDICATION
     Route: 065
  7. RISPERDAL [Interacting]
     Active Substance: RISPERIDONE
     Indication: PRODUCT USED FOR UNKNOWN INDICATION
     Route: 065
  8. HALOPERIDOL. [Suspect]
     Active Substance: HALOPERIDOL
     Indication: PRODUCT USED FOR UNKNOWN INDICATION
     Route: 065

REACTIONS (53)
  - Drug interaction [Unknown]
  - Diabetes mellitus [Unknown]
  - Confusional state [Unknown]
  - Dyskinesia [Unknown]
  - Rectal haemorrhage [Unknown]
  - Seizure [Unknown]
  - Weight increased [Unknown]
  - Somnolence [Unknown]
  - Tremor [Unknown]
  - Oedema peripheral [Unknown]
  - Decreased appetite [Unknown]
  - Accidental exposure to product [Unknown]
  - Drug prescribing error [Unknown]
  - Off label use [Unknown]
  - Neuroleptic malignant syndrome [Unknown]
  - Cardiac arrest [Unknown]
  - Agitation [Unknown]
  - Hypertension [Unknown]
  - Akathisia [Unknown]
  - Respiration abnormal [Unknown]
  - Nervous system disorder [Unknown]
  - Medication error [Unknown]
  - Death [Fatal]
  - Delirium [Unknown]
  - Galactorrhoea [Unknown]
  - Palpitations [Unknown]
  - Suicide attempt [Unknown]
  - Muscle spasms [Unknown]
  - Fall [Unknown]
  - Overdose [Unknown]
  - Anxiety [Unknown]
  - Deep vein thrombosis [Unknown]
  - Suicidal ideation [Unknown]
  - Abnormal behaviour [Unknown]
  - Headache [Unknown]
  - Diarrhoea [Unknown]
  - Muscle tone disorder [Unknown]
  - Dyssomnia [Unknown]
  - Sudden death [Fatal]
  - Thrombocytopenia [Unknown]
  - Asthenia [Unknown]
  - Depression [Unknown]
  - Dyspnoea [Unknown]
  - Coma [Unknown]
  - Renal failure [Unknown]
  - Altered state of consciousness [Unknown]
  - Toxic skin eruption [Unknown]
  - Ventricular arrhythmia [Unknown]
  - Intentional self-injury [Unknown]
  - Aggression [Unknown]
  - Extrapyramidal disorder [Unknown]
  - Pyrexia [Unknown]
  - Dystonia [Unknown]
